FAERS Safety Report 25661764 (Version 1)
Quarter: 2025Q3

REPORT INFORMATION
  Report Type: Spontaneous
  Country: US (occurrence: US)
  Receive Date: 20250808
  Receipt Date: 20250808
  Transmission Date: 20251020
  Serious: Yes (Hospitalization, Other)
  Sender: AMGEN
  Company Number: US-AMGEN-USASP2025155400

PATIENT
  Age: 68 Year
  Sex: Female
  Weight: 62.4 kg

DRUGS (25)
  1. TEPEZZA [Suspect]
     Active Substance: TEPROTUMUMAB-TRBW
     Indication: Toxic goitre
     Dosage: 740 MILLIGRAM, Q3WK, (FIRST INFUSION)
     Route: 040
     Dates: start: 20230117
  2. TEPEZZA [Suspect]
     Active Substance: TEPROTUMUMAB-TRBW
     Dosage: 1390 MILLIGRAM, Q3WK, (SECOND INFUSION)
     Route: 040
     Dates: start: 20230207
  3. TEPEZZA [Suspect]
     Active Substance: TEPROTUMUMAB-TRBW
     Dosage: 1295 MILLIGRAM, Q3WK, (THIRD INFUSION)
     Route: 040
     Dates: start: 20230228
  4. TEPEZZA [Suspect]
     Active Substance: TEPROTUMUMAB-TRBW
     Dosage: 1323 MILLIGRAM, Q3WK, (FOURTH INFUSION)
     Route: 040
     Dates: start: 20230321
  5. TEPEZZA [Suspect]
     Active Substance: TEPROTUMUMAB-TRBW
     Dosage: 1372 MILLIGRAM, Q3WK, (FIFTH INFUSION)
     Route: 040
     Dates: start: 20230411
  6. TEPEZZA [Suspect]
     Active Substance: TEPROTUMUMAB-TRBW
     Dosage: 1372 MILLIGRAM, Q3WK, (SIXTH INFUSION)
     Route: 040
     Dates: start: 20230502
  7. TEPEZZA [Suspect]
     Active Substance: TEPROTUMUMAB-TRBW
     Dosage: 1304 MILLIGRAM, Q3WK, (SEVENTH INFUSION)
     Route: 040
     Dates: start: 20230523
  8. TEPEZZA [Suspect]
     Active Substance: TEPROTUMUMAB-TRBW
     Route: 040
     Dates: start: 20230613
  9. PREDNISONE [Suspect]
     Active Substance: PREDNISONE
     Indication: Product used for unknown indication
     Route: 048
  10. SODIUM CHLORIDE [Concomitant]
     Active Substance: SODIUM CHLORIDE
     Route: 065
  11. BETAMETHASONE DIPROPIONATE [Concomitant]
     Active Substance: BETAMETHASONE DIPROPIONATE
     Route: 061
  12. NASACORT [Concomitant]
     Active Substance: TRIAMCINOLONE ACETONIDE
     Route: 045
  13. DEXILANT [Concomitant]
     Active Substance: DEXLANSOPRAZOLE
     Route: 048
  14. FOSAMAX [Concomitant]
     Active Substance: ALENDRONATE SODIUM
     Route: 048
  15. LIPITOR [Concomitant]
     Active Substance: ATORVASTATIN CALCIUM
     Route: 048
  16. METHIMAZOLE [Concomitant]
     Active Substance: METHIMAZOLE
     Route: 048
  17. MICARDIS HCT [Concomitant]
     Active Substance: HYDROCHLOROTHIAZIDE\TELMISARTAN
     Route: 048
  18. NORVASC [Concomitant]
     Active Substance: AMLODIPINE BESYLATE
     Route: 065
  19. ONDANSETRON HYDROCHLORIDE [Concomitant]
     Active Substance: ONDANSETRON HYDROCHLORIDE
     Route: 048
  20. PROPRANOLOL [Concomitant]
     Active Substance: PROPRANOLOL HYDROCHLORIDE
     Route: 048
  21. VITAMIN D2 [Concomitant]
     Active Substance: ERGOCALCIFEROL
     Route: 048
  22. ZYRTEC [Concomitant]
     Active Substance: CETIRIZINE HYDROCHLORIDE
     Route: 048
  23. HUMALOG KWIKPEN [Concomitant]
     Active Substance: INSULIN LISPRO
     Route: 058
  24. LEVEMIR [Concomitant]
     Active Substance: INSULIN DETEMIR
     Route: 058
  25. PNEUMOCOCCAL VACCINE NOS [Concomitant]
     Active Substance: PNEUMOCOCCAL VACCINE
     Route: 065

REACTIONS (7)
  - Renal mass [Unknown]
  - Pancreatic disorder [Unknown]
  - Head injury [Unknown]
  - Vision blurred [Unknown]
  - Eye swelling [Unknown]
  - Blood glucose decreased [Unknown]
  - Thyroxine free decreased [Unknown]
